FAERS Safety Report 9762777 (Version 2)
Quarter: 2013Q4

REPORT INFORMATION
  Report Type: Spontaneous
  Country: US (occurrence: US)
  Receive Date: 20131216
  Receipt Date: 20131216
  Transmission Date: 20140711
  Serious: Yes (Other)
  Sender: FDA-Public Use
  Company Number: US-GILEAD-2013-0083570

PATIENT
  Age: 76 Year
  Sex: Male
  Weight: 76.64 kg

DRUGS (10)
  1. LETAIRIS [Suspect]
     Indication: PULMONARY HYPERTENSION
     Dosage: 10 MG, QD
     Route: 048
     Dates: start: 20130613, end: 20130913
  2. BROVANA [Concomitant]
  3. COMBIVENT [Concomitant]
  4. DIGOXIN [Concomitant]
  5. BUDESONIDE [Concomitant]
  6. FOSAMAX [Concomitant]
  7. TYLENOL                            /00020001/ [Concomitant]
  8. COUMADIN                           /00014802/ [Concomitant]
  9. XOPENEX [Concomitant]
  10. SPIRIVA [Concomitant]

REACTIONS (4)
  - Pulmonary hypertension [Unknown]
  - Drug ineffective [Unknown]
  - Exercise tolerance decreased [Unknown]
  - Dyspnoea [Unknown]
